FAERS Safety Report 8372089-9 (Version None)
Quarter: 2012Q2

REPORT INFORMATION
  Report Type: 
  Country: None (occurrence: None)
  Receive Date: 20120520
  Receipt Date: 20120508
  Transmission Date: 20120825
  Serious: Yes (Life-Threatening)
  Sender: FDA-Public Use
  Company Number: US-BRISTOL-MYERS SQUIBB COMPANY-16576464

PATIENT
  Age: 21 Year
  Sex: Female

DRUGS (1)
  1. TOBRAMYCIN SULFATE [Suspect]
     Indication: CYSTIC FIBROSIS
     Route: 042

REACTIONS (1)
  - PSEUDO-BARTTER SYNDROME [None]
